FAERS Safety Report 12237895 (Version 1)
Quarter: 2016Q2

REPORT INFORMATION
  Report Type: Spontaneous
  Country: GB (occurrence: None)
  Receive Date: 20160404
  Receipt Date: 20160404
  Transmission Date: 20160815
  Serious: Yes (Other)
  Sender: FDA-Public Use
  Company Number: None

PATIENT
  Age: 39 Year
  Sex: Female
  Weight: 85 kg

DRUGS (8)
  1. B12 INJECTIONS [Concomitant]
  2. DEPO INJ. [Concomitant]
  3. FLUOXETINE [Concomitant]
     Active Substance: FLUOXETINE HYDROCHLORIDE
  4. VITAMIN D AND CALCIUM TABLETS [Concomitant]
  5. TRAMADOL. [Concomitant]
     Active Substance: TRAMADOL
  6. VEDOLIZUMAB [Suspect]
     Active Substance: VEDOLIZUMAB
  7. COCODAMOL [Concomitant]
     Active Substance: ACETAMINOPHEN\CODEINE PHOSPHATE
  8. OMEPRAZOLE. [Concomitant]
     Active Substance: OMEPRAZOLE

REACTIONS (8)
  - Flatulence [None]
  - Sinusitis [None]
  - Abdominal distension [None]
  - Swelling [None]
  - Hypertension [None]
  - Breast swelling [None]
  - Arthralgia [None]
  - Myalgia [None]

NARRATIVE: CASE EVENT DATE: 20160304
